FAERS Safety Report 11225185 (Version 1)
Quarter: 2015Q2

REPORT INFORMATION
  Report Type: Spontaneous
  Country: US (occurrence: None)
  Receive Date: 20150626
  Receipt Date: 20150626
  Transmission Date: 20150821
  Serious: Yes (Death)
  Sender: FDA-Public Use
  Company Number: None

PATIENT
  Age: 62 Year
  Sex: Male
  Weight: 68.04 kg

DRUGS (3)
  1. LISINIPRIL 5MG [Concomitant]
     Active Substance: LISINOPRIL
  2. ASPIRIN. [Concomitant]
     Active Substance: ASPIRIN
  3. EFFIENT [Suspect]
     Active Substance: PRASUGREL HYDROCHLORIDE
     Indication: CORONARY ARTERIAL STENT INSERTION
     Dates: start: 20140408, end: 20140718

REACTIONS (6)
  - Unresponsive to stimuli [None]
  - Seizure [None]
  - Haemorrhage [None]
  - Prescribed overdose [None]
  - Cerebral haemorrhage [None]
  - Skin abrasion [None]

NARRATIVE: CASE EVENT DATE: 20140719
